FAERS Safety Report 6264216-4 (Version None)
Quarter: 2009Q3

REPORT INFORMATION
  Report Type: 
  Country: None (occurrence: None)
  Receive Date: 20090706
  Receipt Date: 20081210
  Transmission Date: 20100115
  Serious: Yes (Other)
  Sender: FDA-Public Use
  Company Number: 2008120017

PATIENT
  Age: 36 Year
  Sex: Female

DRUGS (2)
  1. CARISOPRODOL [Suspect]
     Indication: ANXIETY
     Dosage: 20 TABLETS/DAY FOR 6-7 MONTHS (7000 MG, 1 IN 1 D), ORAL
     Route: 048
     Dates: start: 20080101
  2. CARISOPRODOL [Suspect]
     Indication: PAIN
     Dosage: 20 TABLETS/DAY FOR 6-7 MONTHS (7000 MG, 1 IN 1 D), ORAL
     Route: 048
     Dates: start: 20080101

REACTIONS (1)
  - DRUG DEPENDENCE [None]
